FAERS Safety Report 6700153-6 (Version None)
Quarter: 2010Q2

REPORT INFORMATION
  Report Type: 
  Country: None (occurrence: None)
  Receive Date: 20100426
  Receipt Date: 20100416
  Transmission Date: 20101027
  Serious: Yes (Other)
  Sender: FDA-Public Use
  Company Number: SPV1-2010-00217

PATIENT
  Age: 63 Year
  Sex: Female
  Weight: 62 kg

DRUGS (7)
  1. XAGRID(ANAGRELIDE HYDROCHLORIDE) CAPSULE [Suspect]
     Indication: ESSENTIAL THROMBOCYTHAEMIA
     Dosage: 0.5 MG DAILY ALTERNATING WITH 1.0 MG DAILY, ORAL
     Route: 048
     Dates: start: 19980301, end: 20100208
  2. METOPROLOL SUCCINATE [Concomitant]
  3. AMLODIPINE BESYLATE [Concomitant]
  4. DIOVAN [Concomitant]
  5. LERCANIDIPINE [Concomitant]
  6. CRANOC (FLUVASTATIN SODIUM) [Concomitant]
  7. L-THYROX (LEVOTHYROXINE SODIUM) [Concomitant]

REACTIONS (1)
  - RENAL FAILURE CHRONIC [None]
